FAERS Safety Report 17803265 (Version 2)
Quarter: 2020Q2

REPORT INFORMATION
  Report Type: Report from Study
  Country: None (occurrence: BR)
  Receive Date: 20200519
  Receipt Date: 20200521
  Transmission Date: 20200714
  Serious: Yes (Other)
  Sender: FDA-Public Use
  Company Number: BR-ABBVIE-20K-020-3405494-00

PATIENT
  Sex: Female
  Weight: 70 kg

DRUGS (4)
  1. HUMIRA [Suspect]
     Active Substance: ADALIMUMAB
     Indication: PSORIATIC ARTHROPATHY
     Route: 058
     Dates: start: 20180601
  2. SERTRALINE [Concomitant]
     Active Substance: SERTRALINE HYDROCHLORIDE
     Indication: DEPRESSION
     Dates: start: 2002
  3. BROMAZEPAM [Concomitant]
     Active Substance: BROMAZEPAM
     Indication: DEPRESSION
     Dates: start: 2002
  4. LOSARTAN. [Concomitant]
     Active Substance: LOSARTAN
     Indication: DEPRESSION
     Dates: start: 2002

REACTIONS (7)
  - Pain [Unknown]
  - Blindness [Recovering/Resolving]
  - Type 1 diabetes mellitus [Recovering/Resolving]
  - Eye movement disorder [Unknown]
  - Seizure [Unknown]
  - Unevaluable event [Unknown]
  - Fall [Unknown]
